FAERS Safety Report 6379839-1 (Version None)
Quarter: 2009Q3

REPORT INFORMATION
  Report Type: 
  Country: None (occurrence: None)
  Receive Date: 20090923
  Receipt Date: 20090810
  Transmission Date: 20100115
  Serious: Yes (Other)
  Sender: FDA-Public Use
  Company Number: E-09-278

PATIENT
  Age: 67 Year
  Sex: Female

DRUGS (12)
  1. CYCLOBENZAPRINE HCL [Suspect]
     Indication: BACK PAIN
     Dosage: ONE P.O.  B.I.D.; JUL-AGO 2009
     Route: 048
     Dates: start: 20090701, end: 20090801
  2. DARVOCET-N 100 [Concomitant]
  3. PREVACID [Concomitant]
  4. BENICAR 10 MG [Concomitant]
  5. DYAZIDE [Concomitant]
  6. POTASSIUM CHLORIDE [Concomitant]
  7. SIMVASTATIN [Concomitant]
  8. ACTONEL [Concomitant]
  9. FISH OIL [Concomitant]
  10. CITRICAL [Concomitant]
  11. VIT D [Concomitant]
  12. VIT C [Concomitant]

REACTIONS (1)
  - DRY MOUTH [None]
